FAERS Safety Report 4360879-9 (Version None)
Quarter: 2004Q2

REPORT INFORMATION
  Report Type: 
  Country: None (occurrence: None)
  Receive Date: 20040517
  Receipt Date: 20040429
  Transmission Date: 20050107
  Serious: Yes (Hospitalization)
  Sender: FDA-Public Use
  Company Number: 179443

PATIENT
  Age: 29 Year
  Sex: Female
  Weight: 49 kg

DRUGS (4)
  1. AVONEX ^BIOGEN^ [Suspect]
     Indication: MULTIPLE SCLEROSIS
     Dosage: 30 MCG QW IM
     Route: 030
     Dates: start: 20021101, end: 20030821
  2. AVONEX ^BIOGEN^ [Suspect]
     Indication: MULTIPLE SCLEROSIS
     Dosage: 30 MCG QW IM
     Route: 030
     Dates: end: 20030904
  3. AVONEX ^BIOGEN^ [Suspect]
     Indication: MULTIPLE SCLEROSIS
     Dosage: 30 MCG QW IM
     Route: 030
     Dates: start: 20030911
  4. IBUPROFEN [Concomitant]

REACTIONS (5)
  - ABSCESS INTESTINAL [None]
  - COLITIS [None]
  - COLONIC FISTULA [None]
  - CROHN'S DISEASE [None]
  - POST PROCEDURAL COMPLICATION [None]
